FAERS Safety Report 6446522-3 (Version None)
Quarter: 2009Q4

REPORT INFORMATION
  Report Type: 
  Country: None (occurrence: None)
  Receive Date: 20091119
  Receipt Date: 20091111
  Transmission Date: 20100525
  Serious: Yes (Other)
  Sender: FDA-Public Use
  Company Number: US-NOVOPROD-291974

PATIENT
  Sex: Female

DRUGS (3)
  1. NOVOLOG [Suspect]
     Indication: DIABETES MELLITUS
     Dosage: SLIDING SCALE
     Route: 058
  2. NOVOLOG [Suspect]
     Dosage: SLIDING SCALE
     Route: 058
  3. NOVOLOG [Suspect]
     Dosage: SLIDING SCALE
     Route: 058

REACTIONS (1)
  - CATARACT [None]
